FAERS Safety Report 10077031 (Version 2)
Quarter: 2014Q2

REPORT INFORMATION
  Report Type: Spontaneous
  Country: US (occurrence: US)
  Receive Date: 20140414
  Receipt Date: 20140527
  Transmission Date: 20141212
  Serious: No
  Sender: FDA-Public Use
  Company Number: US-B.I. PHARMACEUTICALS,INC./RIDGEFIELD-2014-BI-14504BP

PATIENT
  Age: 56 Year
  Sex: Female
  Weight: 66 kg

DRUGS (4)
  1. MIRAPEX [Suspect]
     Indication: DOPAMINE DYSREGULATION SYNDROME
     Dosage: 1.5 MG
     Route: 048
     Dates: start: 20140317, end: 20140328
  2. MIRAPEX [Suspect]
     Indication: DOPAMINE DYSREGULATION SYNDROME
  3. MIRAPEX [Suspect]
     Indication: RESTLESS LEGS SYNDROME
  4. NUPRO [Concomitant]
     Indication: DOPAMINE DYSREGULATION SYNDROME
     Dosage: 2 MG
     Route: 061

REACTIONS (12)
  - Eye swelling [Recovered/Resolved]
  - Lethargy [Recovered/Resolved]
  - Dizziness [Recovered/Resolved]
  - Nausea [Recovered/Resolved]
  - Headache [Recovered/Resolved]
  - Asthenopia [Recovered/Resolved]
  - Nausea [Unknown]
  - Disturbance in attention [Unknown]
  - Eyelid oedema [Unknown]
  - Swelling face [Recovered/Resolved]
  - Off label use [Recovered/Resolved]
  - Off label use [Unknown]
